FAERS Safety Report 8467831-2 (Version None)
Quarter: 2012Q2

REPORT INFORMATION
  Report Type: 
  Country: None (occurrence: None)
  Receive Date: 20120626
  Receipt Date: 20120615
  Transmission Date: 20120825
  Serious: Yes (Congenital Anomaly)
  Sender: FDA-Public Use
  Company Number: US-VIIV HEALTHCARE LIMITED-A0982208A

PATIENT
  Sex: Male

DRUGS (6)
  1. COMBIVIR [Suspect]
     Indication: ANTIRETROVIRAL THERAPY
     Dosage: 2TAB PER DAY
     Route: 064
     Dates: start: 20111110, end: 20120607
  2. TRUVADA [Suspect]
     Indication: ANTIRETROVIRAL THERAPY
     Dosage: 1TAB PER DAY
     Route: 064
     Dates: end: 20111110
  3. RETROVIR [Concomitant]
     Indication: ANTIRETROVIRAL THERAPY
     Dosage: 2MGKH SINGLE DOSE
     Route: 064
     Dates: start: 20120525, end: 20120525
  4. REYATAZ [Suspect]
     Indication: ANTIRETROVIRAL THERAPY
     Dosage: 300MGD PER DAY
     Route: 064
  5. RETROVIR [Concomitant]
     Dosage: 1MGKH SINGLE DOSE
     Route: 064
     Dates: start: 20120525, end: 20120525
  6. NORVIR [Suspect]
     Indication: ANTIRETROVIRAL THERAPY
     Dosage: 100MGD PER DAY
     Route: 064

REACTIONS (2)
  - HYDRONEPHROSIS [None]
  - FOETAL EXPOSURE DURING PREGNANCY [None]
